FAERS Safety Report 8587111-4 (Version None)
Quarter: 2012Q3

REPORT INFORMATION
  Report Type: 
  Country: None (occurrence: None)
  Receive Date: 20120810
  Receipt Date: 20120712
  Transmission Date: 20120928
  Serious: Yes (Hospitalization)
  Sender: FDA-Public Use
  Company Number: ZA-MYLANLABS-2012S1016388

PATIENT
  Age: 25 Year
  Sex: Female

DRUGS (1)
  1. WARFARIN SODIUM [Suspect]
     Indication: ANTICOAGULANT THERAPY
     Dosage: 5MG DAILY
     Route: 065

REACTIONS (2)
  - CARDIAC VALVE REPLACEMENT COMPLICATION [None]
  - MATERNAL EXPOSURE DURING PREGNANCY [None]
